FAERS Safety Report 10985771 (Version 1)
Quarter: 2015Q2

REPORT INFORMATION
  Report Type: Spontaneous
  Country: US (occurrence: US)
  Receive Date: 20150404
  Receipt Date: 20150404
  Transmission Date: 20150821
  Serious: No
  Sender: FDA-Public Use
  Company Number: US-SA-2014SA070888

PATIENT
  Sex: Male

DRUGS (1)
  1. ALLEGRA-D [Suspect]
     Active Substance: FEXOFENADINE\PSEUDOEPHEDRINE
     Indication: HYPERSENSITIVITY
     Dosage: TAKEN FROM: 4 TO 6 MONTHS AGO
     Route: 048

REACTIONS (5)
  - Insomnia [Unknown]
  - Hyperventilation [Unknown]
  - Pharyngeal disorder [Unknown]
  - Multiple allergies [Unknown]
  - Underdose [Unknown]
